FAERS Safety Report 13187331 (Version 2)
Quarter: 2017Q1

REPORT INFORMATION
  Report Type: Spontaneous
  Country: US (occurrence: US)
  Receive Date: 20170206
  Receipt Date: 20170329
  Transmission Date: 20170428
  Serious: No
  Sender: FDA-Public Use
  Company Number: ALCN2017US001148

PATIENT
  Sex: Female

DRUGS (1)
  1. TEARS NATURALE FREE [Suspect]
     Active Substance: DEXTRAN 70\HYPROMELLOSE 2910 (4000 MPA.S)
     Indication: PRODUCT USED FOR UNKNOWN INDICATION
     Dosage: UNK
     Route: 047
     Dates: start: 20170121, end: 201701

REACTIONS (2)
  - Eye irritation [Recovered/Resolved]
  - Product container seal issue [Unknown]

NARRATIVE: CASE EVENT DATE: 20170121
